FAERS Safety Report 15492909 (Version 1)
Quarter: 2018Q4

REPORT INFORMATION
  Report Type: Spontaneous
  Country: US (occurrence: US)
  Receive Date: 20181004
  Receipt Date: 20181004
  Transmission Date: 20190205
  Serious: Yes (Hospitalization)
  Sender: FDA-Public Use
  Company Number: None

PATIENT
  Age: 63 Year
  Sex: Male
  Weight: 72 kg

DRUGS (9)
  1. BISPROLOL 2.5MG [Concomitant]
  2. PLAVIX [Concomitant]
     Active Substance: CLOPIDOGREL BISULFATE
  3. GLIMEPRIDE [Suspect]
     Active Substance: GLIMEPIRIDE
     Indication: DIABETES MELLITUS
     Route: 048
     Dates: start: 20180821, end: 20180901
  4. ALLOPURINOL 300MG [Concomitant]
     Active Substance: ALLOPURINOL
  5. HYDRALAZINE 10MG [Concomitant]
     Active Substance: HYDRALAZINE HYDROCHLORIDE
  6. FUROSEMIDE 40MG [Concomitant]
     Active Substance: FUROSEMIDE
  7. SPIRONOLACTONE 25MG [Concomitant]
     Active Substance: SPIRONOLACTONE
  8. NITROSTAT [Concomitant]
     Active Substance: NITROGLYCERIN
  9. ISOSORBIDE DINITRATE 10MG [Concomitant]

REACTIONS (2)
  - Hyperkalaemia [None]
  - Blood glucose decreased [None]

NARRATIVE: CASE EVENT DATE: 20180901
